FAERS Safety Report 14973761 (Version 1)
Quarter: 2020Q3

REPORT INFORMATION
  Report Type: Spontaneous
  Country: GB (occurrence: GB)
  Receive Date: 20180605
  Receipt Date: 20180605
  Transmission Date: 20201105
  Serious: Yes (Death, Hospitalization)
  Sender: FDA-Public Use
  Company Number: IND-GB-009507513-1805GBR012925

PATIENT
  Age: 84 Year
  Sex: Female

DRUGS (1)
  1. ETORICOXIB. [Suspect]
     Active Substance: ETORICOXIB
     Indication: OSTEOARTHRITIS
     Route: 048
     Dates: start: 20170926, end: 20171003

REACTIONS (3)
  - Acute hepatic failure [Fatal]
  - Renal failure [Fatal]
  - Drug-induced liver injury [Fatal]

NARRATIVE: CASE EVENT DATE: 20171003
